APPROVED DRUG PRODUCT: PRAVASTATIN SODIUM
Active Ingredient: PRAVASTATIN SODIUM
Strength: 80MG
Dosage Form/Route: TABLET;ORAL
Application: A077491 | Product #001 | TE Code: AB
Applicant: APNAR PHARMA LP
Approved: Feb 11, 2008 | RLD: No | RS: No | Type: RX